FAERS Safety Report 5633413-0 (Version None)
Quarter: 2008Q1

REPORT INFORMATION
  Report Type: 
  Country: None (occurrence: None)
  Receive Date: 20080221
  Receipt Date: 20080213
  Transmission Date: 20080703
  Serious: Yes (Hospitalization, Disabling, Other)
  Sender: FDA-Public Use
  Company Number: US-PFIZER INC-2006129860

PATIENT
  Sex: Female
  Weight: 65.8 kg

DRUGS (3)
  1. BEXTRA [Suspect]
     Indication: PAIN
  2. BEXTRA [Suspect]
     Indication: OSTEOARTHRITIS
  3. BEXTRA [Suspect]
     Indication: ARTHRITIS

REACTIONS (2)
  - EMOTIONAL DISTRESS [None]
  - MYOCARDIAL INFARCTION [None]
